FAERS Safety Report 16400715 (Version 1)
Quarter: 2019Q2

REPORT INFORMATION
  Report Type: Spontaneous
  Country: CA (occurrence: CA)
  Receive Date: 20190606
  Receipt Date: 20190606
  Transmission Date: 20190711
  Serious: Yes (Other)
  Sender: FDA-Public Use
  Company Number: CA-PFIZER INC-2019241047

PATIENT

DRUGS (2)
  1. ATORVASTATIN CALCIUM. [Suspect]
     Active Substance: ATORVASTATIN CALCIUM
     Dosage: UNK
  2. TICAGRELOR. [Interacting]
     Active Substance: TICAGRELOR
     Dosage: UNK

REACTIONS (3)
  - Rhabdomyolysis [Unknown]
  - Myalgia [Recovered/Resolved]
  - Drug interaction [Unknown]
